FAERS Safety Report 5080003-7 (Version None)
Quarter: 2006Q3

REPORT INFORMATION
  Report Type: 
  Country: None (occurrence: None)
  Receive Date: 20060810
  Receipt Date: 20060802
  Transmission Date: 20061208
  Serious: Yes (Hospitalization, Other)
  Sender: FDA-Public Use
  Company Number: SPV1-2006-00317

PATIENT
  Age: 39 Year
  Sex: Male

DRUGS (3)
  1. MESALAMINE [Suspect]
     Indication: CROHN'S DISEASE
     Dosage: UNK, UNKNOWN, UNKNOWN
  2. SALBUTAMOL (SALBUTAMOL) [Concomitant]
  3. URSODEOXYCHOLIC AC (URSODEOXYCHOLIC ACID) [Concomitant]

REACTIONS (13)
  - ALLERGIC GRANULOMATOUS ANGIITIS [None]
  - BIOPSY BONE MARROW ABNORMAL [None]
  - BLASTOCYSTIS INFECTION [None]
  - CULTURE STOOL POSITIVE [None]
  - EMPHYSEMA [None]
  - HAEMATURIA [None]
  - HYPOACUSIS [None]
  - IIIRD NERVE PARALYSIS [None]
  - MONONEUROPATHY MULTIPLEX [None]
  - NYSTAGMUS [None]
  - OBSTRUCTIVE AIRWAYS DISORDER [None]
  - SINUSITIS [None]
  - VERTIGO [None]
